FAERS Safety Report 7727116-6 (Version None)
Quarter: 2011Q3

REPORT INFORMATION
  Report Type: 
  Country: None (occurrence: None)
  Receive Date: 20110902
  Receipt Date: 20110826
  Transmission Date: 20111222
  Serious: Yes (Other)
  Sender: FDA-Public Use
  Company Number: JP-PFIZER INC-2011170290

PATIENT
  Age: 54 Year
  Sex: Male

DRUGS (4)
  1. GABAPENTIN [Suspect]
     Indication: CANCER PAIN
     Dosage: UNK
     Route: 048
  2. PROCHLORPERAZINE [Concomitant]
     Dosage: UNK
  3. CARBAMAZEPINE [Suspect]
     Dosage: UNK
  4. OXYCODONE [Concomitant]
     Dosage: UNK

REACTIONS (4)
  - PAIN IN EXTREMITY [None]
  - C-REACTIVE PROTEIN INCREASED [None]
  - HEPATIC FUNCTION ABNORMAL [None]
  - PYREXIA [None]
